FAERS Safety Report 10035524 (Version 1)
Quarter: 2014Q1

REPORT INFORMATION
  Report Type: Spontaneous
  Country: US (occurrence: US)
  Receive Date: 20140325
  Receipt Date: 20140325
  Transmission Date: 20141002
  Serious: No
  Sender: FDA-Public Use
  Company Number: US-PFIZER INC-2014080940

PATIENT
  Age: 59 Year
  Sex: Female
  Weight: 77.1 kg

DRUGS (2)
  1. LYRICA [Suspect]
     Indication: FIBROMYALGIA
     Dosage: 75 MG, 3X/DAY
     Route: 048
  2. FLEXERIL [Concomitant]
     Dosage: UNK, 3X/DAY

REACTIONS (2)
  - Weight increased [Not Recovered/Not Resolved]
  - Local swelling [Recovered/Resolved]
